FAERS Safety Report 24797814 (Version 3)
Quarter: 2025Q1

REPORT INFORMATION
  Report Type: Report from Study
  Country: CA (occurrence: CA)
  Receive Date: 20250102
  Receipt Date: 20250303
  Transmission Date: 20250409
  Serious: Yes (Other)
  Sender: TAKEDA
  Company Number: CA-TAKEDA-2024TUS130756

PATIENT
  Sex: Female

DRUGS (4)
  1. VEDOLIZUMAB [Suspect]
     Active Substance: VEDOLIZUMAB
     Indication: Colitis ulcerative
  2. VEDOLIZUMAB [Suspect]
     Active Substance: VEDOLIZUMAB
  3. ENTOCORT [Concomitant]
     Active Substance: BUDESONIDE
  4. MESALAMINE [Concomitant]
     Active Substance: MESALAMINE

REACTIONS (8)
  - Colitis ulcerative [Not Recovered/Not Resolved]
  - Drug ineffective [Not Recovered/Not Resolved]
  - Defaecation urgency [Unknown]
  - Hepatic pain [Unknown]
  - Rectal tenesmus [Unknown]
  - Frequent bowel movements [Unknown]
  - Faeces soft [Unknown]
  - Stress [Unknown]
